FAERS Safety Report 6545747-6 (Version None)
Quarter: 2010Q1

REPORT INFORMATION
  Report Type: 
  Country: None (occurrence: None)
  Receive Date: 20100119
  Receipt Date: 20100104
  Transmission Date: 20100710
  Serious: Yes (Hospitalization)
  Sender: FDA-Public Use
  Company Number: 2009AC000069

PATIENT
  Age: 55 Year
  Sex: Male

DRUGS (26)
  1. DIGOXIN [Suspect]
     Dosage: 0.125 MG;QD;PO
     Route: 048
     Dates: start: 20070522
  2. DIGOXIN [Suspect]
     Dosage: 0.25 MG;QD;PO
     Route: 048
     Dates: end: 20070522
  3. POTASSIUM CHLORIDE [Concomitant]
  4. ZINACEF [Concomitant]
  5. QUINIDINE HCL [Concomitant]
  6. MEXITIL [Concomitant]
  7. LISINOPRIL [Concomitant]
  8. LASIX [Concomitant]
  9. XANAX [Concomitant]
  10. AMIODARONE [Concomitant]
  11. ASPIRIN [Concomitant]
  12. SURFAX [Concomitant]
  13. ALDACTONE [Concomitant]
  14. PRINIVIL [Concomitant]
  15. K-DUR [Concomitant]
  16. COREG [Concomitant]
  17. LISINOPRIL [Concomitant]
  18. MEXILETINE HYDROCHLORIDE [Concomitant]
  19. SPIRONOLACTONE [Concomitant]
  20. POTASSIUM [Concomitant]
  21. ASPIRIN [Concomitant]
  22. ALPRAZOLAM [Concomitant]
  23. AMIODARONE [Concomitant]
  24. FUROSEMIDE [Concomitant]
  25. AMOXICILLIN [Concomitant]
  26. MEXILETINE HYDROCHLORIDE [Concomitant]

REACTIONS (16)
  - ASTHMA [None]
  - CARDIAC FAILURE [None]
  - CARDIOMYOPATHY [None]
  - CELLULITIS [None]
  - DISEASE RECURRENCE [None]
  - DYSPNOEA [None]
  - ECONOMIC PROBLEM [None]
  - INJURY [None]
  - MITRAL VALVE INCOMPETENCE [None]
  - PLEURAL EFFUSION [None]
  - THROMBOPHLEBITIS [None]
  - TRICUSPID VALVE INCOMPETENCE [None]
  - UNRESPONSIVE TO STIMULI [None]
  - VENTRICULAR FIBRILLATION [None]
  - VENTRICULAR TACHYCARDIA [None]
  - WAIST CIRCUMFERENCE INCREASED [None]
